FAERS Safety Report 6115156-2 (Version None)
Quarter: 2009Q1

REPORT INFORMATION
  Report Type: 
  Country: None (occurrence: None)
  Receive Date: 20090313
  Receipt Date: 20090311
  Transmission Date: 20090719
  Serious: Yes (Other)
  Sender: FDA-Public Use
  Company Number: JP-ASTRAZENECA-2009AP01670

PATIENT
  Age: 55 Year
  Sex: Male
  Weight: 86 kg

DRUGS (1)
  1. DIPRIVAN [Suspect]
     Indication: GENERAL ANAESTHESIA
     Dosage: 2-3 MG/KG, ABOUT 200 MG IN TOTAL
     Route: 042
     Dates: start: 20090303

REACTIONS (1)
  - CEREBRAL INFARCTION [None]
